FAERS Safety Report 6985614-7 (Version None)
Quarter: 2010Q3

REPORT INFORMATION
  Report Type: 
  Country: None (occurrence: None)
  Receive Date: 20100915
  Receipt Date: 20100910
  Transmission Date: 20110219
  Serious: Yes (Hospitalization)
  Sender: FDA-Public Use
  Company Number: US-BRISTOL-MYERS SQUIBB COMPANY-15281439

PATIENT
  Age: 48 Year
  Sex: Female

DRUGS (7)
  1. ONGLYZA [Suspect]
     Dates: start: 20100707
  2. LISINOPRIL [Suspect]
  3. INSULIN [Concomitant]
  4. FUROSEMIDE [Concomitant]
  5. SPIRONOLACTONE [Concomitant]
  6. ACTONEL [Concomitant]
  7. AMLODIPINE [Concomitant]

REACTIONS (1)
  - RENAL FAILURE [None]
